FAERS Safety Report 14321833 (Version 1)
Quarter: 2017Q4

REPORT INFORMATION
  Report Type: Report from Study
  Country: FI (occurrence: FI)
  Receive Date: 20171224
  Receipt Date: 20171224
  Transmission Date: 20180321
  Serious: Yes (Hospitalization)
  Sender: FDA-Public Use
  Company Number: FI-ROCHE-2040657

PATIENT
  Age: 68 Year
  Sex: Female
  Weight: 147.7 kg

DRUGS (6)
  1. FILGRASTIM [Concomitant]
     Active Substance: FILGRASTIM
     Route: 058
     Dates: start: 20171211
  2. ALLOPURINOL. [Concomitant]
     Active Substance: ALLOPURINOL
     Route: 048
     Dates: start: 20171205
  3. IBRUTINIB [Suspect]
     Active Substance: IBRUTINIB
     Indication: CHRONIC LYMPHOCYTIC LEUKAEMIA
     Dosage: LAST DOSE PRIOR TO SAE: 10/DEC/2017
     Route: 048
     Dates: start: 20171207, end: 20171211
  4. OBINUTUZUMAB. [Suspect]
     Active Substance: OBINUTUZUMAB
     Indication: CHRONIC LYMPHOCYTIC LEUKAEMIA
     Dosage: DATE OF MOST RECENT DOSE RECIEVED ON 08/DEC/2017?CYCLE 1: 100 MG, D1; 900 MG, D1(2); 1000 MG, D8+15,
     Route: 042
     Dates: start: 20171207
  5. SULFA-TRIMETHOPRIM [Concomitant]
     Dosage: 160/80 MG
     Route: 048
     Dates: start: 20171208
  6. ACICLOVIR [Concomitant]
     Active Substance: ACYCLOVIR
     Route: 048
     Dates: start: 20171208

REACTIONS (2)
  - Coronary artery disease [Not Recovered/Not Resolved]
  - Lung infection [Not Recovered/Not Resolved]

NARRATIVE: CASE EVENT DATE: 20171208
